FAERS Safety Report 9784770 (Version 1)
Quarter: 2013Q4

REPORT INFORMATION
  Report Type: Spontaneous
  Country: NL (occurrence: NL)
  Receive Date: 20131227
  Receipt Date: 20131227
  Transmission Date: 20140711
  Serious: Yes (Hospitalization, Other)
  Sender: FDA-Public Use
  Company Number: NL-ROCHE-1321975

PATIENT
  Age: 57 Year
  Sex: Female

DRUGS (15)
  1. MYCOPHENOLATE MOFETIL [Suspect]
     Indication: PROPHYLAXIS AGAINST TRANSPLANT REJECTION
     Route: 065
     Dates: end: 201201
  2. MYCOPHENOLATE MOFETIL [Suspect]
     Route: 065
     Dates: start: 201202
  3. VALGANCICLOVIR [Suspect]
     Indication: ANTIVIRAL PROPHYLAXIS
     Route: 065
  4. VALGANCICLOVIR [Suspect]
     Route: 065
  5. VALGANCICLOVIR [Suspect]
     Route: 065
     Dates: start: 201203, end: 201204
  6. VALGANCICLOVIR [Suspect]
     Route: 065
  7. GANCICLOVIR [Suspect]
     Indication: ANTIVIRAL TREATMENT
     Dosage: DOSE OF 5 MG/KG ADJUSTED TO HER IMPAIRED KIDNEY FUNCTION
     Route: 042
     Dates: start: 201201
  8. PREDNISOLONE [Suspect]
     Indication: PROPHYLAXIS AGAINST TRANSPLANT REJECTION
     Route: 065
  9. TACROLIMUS [Suspect]
     Indication: PROPHYLAXIS AGAINST TRANSPLANT REJECTION
     Dosage: DOSAGE ADJUSTED TO DRUG TROUGH LEVELS BETWEEN 7 AND 10 LG/L
     Route: 065
  10. BASILIXIMAB [Suspect]
     Indication: PROPHYLAXIS AGAINST TRANSPLANT REJECTION
     Dosage: AT DAY 0 AND 4
     Route: 042
  11. FOSCARNET [Suspect]
     Indication: ANTIVIRAL TREATMENT
     Route: 065
     Dates: start: 201204, end: 201205
  12. FOSCARNET [Suspect]
     Route: 065
  13. FOSCARNET [Suspect]
     Route: 065
  14. MEGALOTECT [Concomitant]
     Route: 065
  15. LEFLUNOMIDE [Concomitant]
     Dosage: 100 MG QD DAY 1-3, MAINTENANCE DOSE 20 MG QD
     Route: 065

REACTIONS (3)
  - Cytomegalovirus gastrointestinal infection [Unknown]
  - Cytomegalovirus viraemia [Recovered/Resolved]
  - Drug resistance [Unknown]
